FAERS Safety Report 7059800-4 (Version None)
Quarter: 2010Q4

REPORT INFORMATION
  Report Type: 
  Country: None (occurrence: None)
  Receive Date: 20101025
  Receipt Date: 20101019
  Transmission Date: 20110411
  Serious: Yes (Death)
  Sender: FDA-Public Use
  Company Number: KR-PFIZER INC-2009286141

PATIENT
  Age: 27 Year
  Sex: Male
  Weight: 55 kg

DRUGS (4)
  1. VORICONAZOLE [Suspect]
     Indication: ASPERGILLOSIS
     Dosage: 200 MG, 2X/DAY
     Route: 048
     Dates: start: 20051028, end: 20060122
  2. AMITRIPTYLINE HYDROCHLORIDE [Concomitant]
     Indication: HYPOAESTHESIA
     Dosage: 10 MG, 1X/DAY
     Route: 048
     Dates: start: 20050626, end: 20060126
  3. GABAPENTIN [Concomitant]
     Indication: HYPOAESTHESIA
     Dosage: 400 MG, 3X/DAY
     Route: 048
     Dates: start: 20050908, end: 20060126
  4. TRIMETHOPRIM [Concomitant]
     Indication: COLITIS
     Dosage: 960 MG, 1X/DAY
     Route: 048
     Dates: start: 20050326, end: 20060126

REACTIONS (1)
  - CEREBRAL ASPERGILLOSIS [None]
